FAERS Safety Report 5128842-8 (Version None)
Quarter: 2006Q4

REPORT INFORMATION
  Report Type: 
  Country: None (occurrence: None)
  Receive Date: 20061017
  Receipt Date: 20061012
  Transmission Date: 20070319
  Serious: Yes (Hospitalization)
  Sender: FDA-Public Use
  Company Number: GB-GLAXOSMITHKLINE-B0441845A

PATIENT
  Sex: Male

DRUGS (2)
  1. NIQUITIN CQ CLEAR 21MG [Suspect]
     Dosage: 21MG PER DAY
     Route: 062
     Dates: start: 20061011
  2. VENTOLIN [Concomitant]

REACTIONS (3)
  - ASTHMA [None]
  - HYPOAESTHESIA [None]
  - SOMNOLENCE [None]
